FAERS Safety Report 7339264-3 (Version None)
Quarter: 2011Q1

REPORT INFORMATION
  Report Type: 
  Country: None (occurrence: None)
  Receive Date: 20110308
  Receipt Date: 20110306
  Transmission Date: 20110831
  Serious: Yes (Other)
  Sender: FDA-Public Use
  Company Number: US-PFIZER INC-2011048770

PATIENT
  Sex: Female
  Weight: 74.83 kg

DRUGS (2)
  1. VITAMIN D [Concomitant]
     Dosage: UNK
  2. CHANTIX [Suspect]
     Indication: SMOKING CESSATION THERAPY
     Dosage: 1 MG, 2X/DAY
     Route: 048
     Dates: start: 20110223

REACTIONS (5)
  - EAR DISORDER [None]
  - HYPOACUSIS [None]
  - FEELING ABNORMAL [None]
  - TINNITUS [None]
  - EAR PAIN [None]
